FAERS Safety Report 16168555 (Version 5)
Quarter: 2020Q4

REPORT INFORMATION
  Report Type: Report from Study
  Country: None (occurrence: JP)
  Receive Date: 20190408
  Receipt Date: 20201001
  Transmission Date: 20210113
  Serious: Yes (Other)
  Sender: FDA-Public Use
  Company Number: JP-ABBVIE-19P-087-2733749-00

PATIENT
  Age: 53 Year
  Sex: Male
  Weight: 62 kg

DRUGS (8)
  1. RIVOTRIL [Concomitant]
     Active Substance: CLONAZEPAM
     Indication: HYPERTHYROIDISM
     Dosage: 1 MILLIGRAM
     Route: 065
  2. GASLON [Concomitant]
     Active Substance: IRSOGLADINE MALEATE
     Indication: GASTRIC ULCER
     Dosage: 4 MILLIGRAM
     Route: 065
  3. MERCAZOLE [Concomitant]
     Active Substance: CARBIMAZOLE
     Indication: PRODUCT USED FOR UNKNOWN INDICATION
     Dosage: 5 MILLIGRAM
     Route: 065
  4. LEUPLIN [Suspect]
     Active Substance: LEUPROLIDE ACETATE
     Dosage: 11.25 MILLIGRAM, Q3MONTHS
     Route: 058
     Dates: start: 20190902, end: 20190902
  5. DILTIAZEM HYDROCHLORIDE. [Concomitant]
     Active Substance: DILTIAZEM HYDROCHLORIDE
     Indication: HYPERTHYROIDISM
     Dosage: 100 MILLIGRAM
     Route: 065
     Dates: end: 20190317
  6. LEUPLIN [Suspect]
     Active Substance: LEUPROLIDE ACETATE
     Indication: BULBOSPINAL MUSCULAR ATROPHY CONGENITAL
     Dosage: 11.25 MILLIGRAM, Q3MONTHS
     Route: 058
     Dates: start: 20180205, end: 20181029
  7. RINDERON VG [Concomitant]
     Active Substance: BETAMETHASONE VALERATE\GENTAMICIN SULFATE
     Indication: ECZEMA
     Dosage: 5 GRAM
     Route: 065
  8. RINDERON VG [Concomitant]
     Active Substance: BETAMETHASONE VALERATE\GENTAMICIN SULFATE
     Indication: PYODERMA GANGRENOSUM
     Dosage: UNKNOWN

REACTIONS (4)
  - Pyoderma gangrenosum [Recovering/Resolving]
  - Pyoderma gangrenosum [Recovered/Resolved]
  - Hyperlipidaemia [Recovering/Resolving]
  - Condition aggravated [Recovering/Resolving]

NARRATIVE: CASE EVENT DATE: 20180602
